FAERS Safety Report 19923541 (Version 1)
Quarter: 2021Q4

REPORT INFORMATION
  Report Type: Report from Study
  Country: RU (occurrence: RU)
  Receive Date: 20211006
  Receipt Date: 20211006
  Transmission Date: 20220303
  Serious: Yes (Other)
  Sender: FDA-Public Use
  Company Number: RU-CELGENE-RUS-20201202659

PATIENT
  Sex: Female
  Weight: 54.3 kg

DRUGS (3)
  1. OZANIMOD [Suspect]
     Active Substance: OZANIMOD
     Indication: Relapsing multiple sclerosis
     Dosage: 1 MILLIGRAM
     Route: 048
     Dates: start: 20170316, end: 20200915
  2. DIANE (CYPROTERONE ACETATE\ETHINYL ESTRADIOL) [Concomitant]
     Active Substance: CYPROTERONE ACETATE\ETHINYL ESTRADIOL
     Indication: Contraception
     Route: 065
     Dates: start: 20141010
  3. sorbifer durules ferrous sulfate and ascorbic acid [Concomitant]
     Indication: Product used for unknown indication
     Route: 065
     Dates: start: 20200210

REACTIONS (1)
  - Pregnancy [Unknown]
